FAERS Safety Report 20692068 (Version 1)
Quarter: 2022Q2

REPORT INFORMATION
  Report Type: Report from Study
  Country: US (occurrence: US)
  Receive Date: 20220409
  Receipt Date: 20220409
  Transmission Date: 20220721
  Serious: Yes (Hospitalization, Other)
  Sender: FDA-Public Use
  Company Number: US-CELGENE-USA-20220301352

PATIENT
  Age: 69 Year
  Sex: Female
  Weight: 97.5 kg

DRUGS (2)
  1. REVLIMID [Suspect]
     Active Substance: LENALIDOMIDE
     Indication: Follicular lymphoma
     Dosage: 10 MILLIGRAM
     Route: 048
     Dates: start: 20210616
  2. REVLIMID [Suspect]
     Active Substance: LENALIDOMIDE
     Route: 048
     Dates: start: 202112

REACTIONS (4)
  - Hypertension [Unknown]
  - Illness [Unknown]
  - Platelet count decreased [Unknown]
  - Pneumonia [Unknown]
